FAERS Safety Report 7833428-8 (Version None)
Quarter: 2011Q4

REPORT INFORMATION
  Report Type: 
  Country: None (occurrence: None)
  Receive Date: 20111024
  Receipt Date: 20111013
  Transmission Date: 20120403
  Serious: Yes (Hospitalization, Other)
  Sender: FDA-Public Use
  Company Number: AU-ELI_LILLY_AND_COMPANY-AU201108004371

PATIENT
  Sex: Female

DRUGS (1)
  1. FORTEO [Suspect]
     Indication: OSTEOPOROSIS
     Dosage: UNK, QD
     Route: 065
     Dates: start: 20110324

REACTIONS (7)
  - ARTHROPATHY [None]
  - ARTHRITIS [None]
  - FALL [None]
  - GASTRIC DISORDER [None]
  - HIP FRACTURE [None]
  - ARTHRALGIA [None]
  - GAIT DISTURBANCE [None]
